FAERS Safety Report 6511586-5 (Version None)
Quarter: 2009Q4

REPORT INFORMATION
  Report Type: 
  Country: None (occurrence: None)
  Receive Date: 20091222
  Receipt Date: 20090424
  Transmission Date: 20100525
  Serious: No
  Sender: FDA-Public Use
  Company Number: US-ASTRAZENECA-2009UW10397

PATIENT
  Age: 60 Year
  Sex: Female

DRUGS (6)
  1. CRESTOR [Suspect]
     Dosage: 1/2 OF 20 MG TABLET DAILY
     Route: 048
  2. ATENOLOL [Concomitant]
  3. KLOR-CON [Concomitant]
  4. ASPIRIN [Concomitant]
  5. FUROSEMIDE [Concomitant]
  6. PROPYLTHIOURACIL TAB [Concomitant]

REACTIONS (3)
  - LYMPHOEDEMA [None]
  - OEDEMA PERIPHERAL [None]
  - WEIGHT INCREASED [None]
